FAERS Safety Report 15902602 (Version 1)
Quarter: 2019Q1

REPORT INFORMATION
  Report Type: Spontaneous
  Country: TW (occurrence: TW)
  Receive Date: 20190201
  Receipt Date: 20190201
  Transmission Date: 20190417
  Serious: Yes (Death)
  Sender: FDA-Public Use
  Company Number: TW-PANACEA BIOTEC LTD-2019-TW-000001

PATIENT
  Age: 33 Year
  Sex: Female

DRUGS (1)
  1. TACROLIMUS. [Suspect]
     Active Substance: TACROLIMUS
     Indication: PRODUCT USED FOR UNKNOWN INDICATION
     Dosage: SLOWLY INCREASING DAY BY DAY (FROM 13.6 TO 16.5 NG/ML)
     Route: 065

REACTIONS (3)
  - Hepatic infarction [Fatal]
  - Posterior reversible encephalopathy syndrome [Fatal]
  - Overdose [Fatal]
